FAERS Safety Report 12594847 (Version 2)
Quarter: 2016Q3

REPORT INFORMATION
  Report Type: Report from Study
  Country: US (occurrence: US)
  Receive Date: 20160726
  Receipt Date: 20160802
  Transmission Date: 20161109
  Serious: Yes (Hospitalization, Other)
  Sender: FDA-Public Use
  Company Number: US-AMGEN-USASL2016094011

PATIENT
  Age: 69 Year
  Sex: Female

DRUGS (1)
  1. REPATHA [Suspect]
     Active Substance: EVOLOCUMAB
     Indication: HYPERCHOLESTEROLAEMIA
     Dosage: 140 MG, TWO TIME A MONTH
     Route: 065
     Dates: end: 201509

REACTIONS (6)
  - Papule [Not Recovered/Not Resolved]
  - Injection site erythema [Unknown]
  - Skin disorder [Unknown]
  - Injection site bruising [Unknown]
  - Drug effect incomplete [Unknown]
  - Hospitalisation [Unknown]

NARRATIVE: CASE EVENT DATE: 2016
